FAERS Safety Report 4540564-0 (Version None)
Quarter: 2004Q4

REPORT INFORMATION
  Report Type: 
  Country: None (occurrence: None)
  Receive Date: 20041228
  Receipt Date: 20041228
  Transmission Date: 20050328
  Serious: Yes (Other)
  Sender: FDA-Public Use
  Company Number: None

PATIENT
  Sex: Female
  Weight: 74.8435 kg

DRUGS (2)
  1. PREMPRO [Suspect]
     Indication: HOT FLUSH
     Dosage: 1 DAILY ORAL
     Route: 048
     Dates: start: 20031101, end: 20041227
  2. PREMPRO [Suspect]
     Indication: MENOPAUSE
     Dosage: 1 DAILY ORAL
     Route: 048
     Dates: start: 20031101, end: 20041227

REACTIONS (2)
  - HOT FLUSH [None]
  - PHARMACEUTICAL PRODUCT COMPLAINT [None]
